FAERS Safety Report 5088021-X (Version None)
Quarter: 2006Q3

REPORT INFORMATION
  Report Type: 
  Country: None (occurrence: None)
  Receive Date: 20060824
  Receipt Date: 20060823
  Transmission Date: 20061208
  Serious: Yes (Death)
  Sender: FDA-Public Use
  Company Number: GB-BOEHRINGER INGELHEIM PHARMACEUTICALS, INC.-2006-UK-03638UK

PATIENT
  Age: 54 Year
  Sex: Female

DRUGS (2)
  1. ATROVENT [Suspect]
     Indication: EMPHYSEMA
     Route: 055
  2. ALBUTEROL SPIROS [Concomitant]

REACTIONS (2)
  - PULMONARY EMBOLISM [None]
  - URINARY RETENTION [None]
